FAERS Safety Report 14765463 (Version 1)
Quarter: 2018Q2

REPORT INFORMATION
  Report Type: Spontaneous
  Country: FR (occurrence: FR)
  Receive Date: 20180416
  Receipt Date: 20180416
  Transmission Date: 20180711
  Serious: Yes (Death)
  Sender: FDA-Public Use
  Company Number: FR-JNJFOC-20180306923

PATIENT
  Age: 69 Year
  Sex: Male

DRUGS (1)
  1. YONDELIS [Suspect]
     Active Substance: TRABECTEDIN
     Indication: LEIOMYOSARCOMA
     Route: 042
     Dates: start: 20171002

REACTIONS (1)
  - Cardiogenic shock [Fatal]

NARRATIVE: CASE EVENT DATE: 20171004
